FAERS Safety Report 18096526 (Version 1)
Quarter: 2020Q3

REPORT INFORMATION
  Report Type: Spontaneous
  Country: US (occurrence: US)
  Receive Date: 20200730
  Receipt Date: 20200730
  Transmission Date: 20201103
  Serious: Yes (Death, Hospitalization, Other)
  Sender: FDA-Public Use
  Company Number: US-SEATTLE GENETICS-2020SGN03311

PATIENT
  Sex: Female

DRUGS (2)
  1. TUKYSA [Suspect]
     Active Substance: TUCATINIB
     Indication: PRODUCT USED FOR UNKNOWN INDICATION
     Dosage: UNK
  2. XELODA [Concomitant]
     Active Substance: CAPECITABINE

REACTIONS (5)
  - Death [Fatal]
  - Metastases to meninges [Unknown]
  - Metastases to central nervous system [Unknown]
  - Headache [Unknown]
  - Mental status changes [Unknown]
